FAERS Safety Report 23508929 (Version 1)
Quarter: 2024Q1

REPORT INFORMATION
  Report Type: Report from Study
  Country: CH (occurrence: CH)
  Receive Date: 20240209
  Receipt Date: 20240209
  Transmission Date: 20240410
  Serious: Yes (Hospitalization)
  Sender: FDA-Public Use
  Company Number: CH-ABBVIE-5625570

PATIENT
  Sex: Female

DRUGS (3)
  1. CARBIDOPA\LEVODOPA [Suspect]
     Active Substance: CARBIDOPA\LEVODOPA
     Indication: Parkinson^s disease
     Dosage: MD: 1.0 ML, CRD: 2.0 ML/H, ED: 1.0 ML.?16H THERAPY
     Route: 050
     Dates: start: 20240129, end: 20240131
  2. CARBIDOPA\LEVODOPA [Suspect]
     Active Substance: CARBIDOPA\LEVODOPA
     Dosage: MD: 1.0 ML, CRD: 2.4 ML/H, ED: 1.0 ML.?16H THERAPY
     Route: 050
     Dates: start: 20240131, end: 20240201
  3. CARBIDOPA\LEVODOPA [Suspect]
     Active Substance: CARBIDOPA\LEVODOPA
     Dosage: MD: 2.0 ML, CRD: 2.4 ML/H, ED: 1.0 ML.?16H THERAPY
     Route: 050
     Dates: start: 20240201

REACTIONS (2)
  - Corneal transplant [Unknown]
  - Vitrectomy [Unknown]
